FAERS Safety Report 9546584 (Version 1)
Quarter: 2013Q3

REPORT INFORMATION
  Report Type: Report from Study
  Country: FR (occurrence: FR)
  Receive Date: 20130924
  Receipt Date: 20130924
  Transmission Date: 20140515
  Serious: Yes (Hospitalization)
  Sender: FDA-Public Use
  Company Number: FR-ROCHE-1278971

PATIENT
  Sex: Male

DRUGS (9)
  1. BEVACIZUMAB [Suspect]
     Indication: COLORECTAL CANCER
     Dosage: LAST DOSE ADMINISTERED: CYCLE 5 ON 02/SEP/2013, DOSE: 320 MG
     Route: 042
  2. IRINOTECAN [Suspect]
     Indication: COLORECTAL CANCER
     Dosage: LAST DOSE ADMINISTERED: CYCLE 5 ON 02/SEP/2013, DOSE: 320 MG
     Route: 065
  3. FOLINIC ACID [Suspect]
     Indication: COLORECTAL CANCER
     Dosage: LAST DOSE ADMINISTERED: CYCLE 5 ON 02/SEP/2013, DOSE: 716 MG
     Route: 065
  4. 5-FU [Suspect]
     Indication: COLORECTAL CANCER
     Dosage: BOLUS DOSE:760 MG , CYCLE 4
     Route: 065
     Dates: start: 20130818
  5. 5-FU [Suspect]
     Dosage: LAST DOSE ADMINISTERED: CYCLE 5 ON 02/SEP/2013, DOSE: 4300 MG CONTINOUS DOSE
     Route: 065
  6. PRAVASTATINE [Concomitant]
     Indication: HYPERCHOLESTEROLAEMIA
     Route: 065
     Dates: start: 20130101
  7. FLUOXETINE [Concomitant]
     Indication: DEPRESSION
     Route: 065
     Dates: start: 20130401
  8. ONDANSETRON [Concomitant]
     Route: 065
     Dates: start: 20130819, end: 20130821
  9. TOPALGIC (FRANCE) [Concomitant]
     Indication: PAIN
     Route: 065
     Dates: start: 20130809

REACTIONS (1)
  - General physical health deterioration [Not Recovered/Not Resolved]
